FAERS Safety Report 8382204-9 (Version None)
Quarter: 2012Q2

REPORT INFORMATION
  Report Type: 
  Country: None (occurrence: None)
  Receive Date: 20120524
  Receipt Date: 20120521
  Transmission Date: 20120825
  Serious: No
  Sender: FDA-Public Use
  Company Number: US-PFIZER INC-2012123485

PATIENT
  Sex: Female

DRUGS (3)
  1. CHANTIX [Interacting]
     Dosage: 0.5 MG, 2X/DAY
     Route: 048
     Dates: start: 20120501
  2. CHANTIX [Suspect]
     Indication: SMOKING CESSATION THERAPY
     Dosage: 0.5 MG, UNK
     Route: 048
     Dates: start: 20120501
  3. NORCO [Interacting]
     Indication: FOOT FRACTURE
     Dosage: UNK
     Dates: start: 20120501

REACTIONS (2)
  - DRUG INTERACTION [None]
  - DRUG INEFFECTIVE [None]
